FAERS Safety Report 4424015-2 (Version None)
Quarter: 2004Q3

REPORT INFORMATION
  Report Type: 
  Country: None (occurrence: None)
  Receive Date: 20040809
  Receipt Date: 20040809
  Transmission Date: 20050211
  Serious: Yes (Hospitalization)
  Sender: FDA-Public Use
  Company Number: None

PATIENT
  Sex: Male

DRUGS (2)
  1. CARBOPLATIN [Suspect]
     Indication: CARCINOMA
  2. PACLITAXEL [Suspect]
     Indication: CARCINOMA

REACTIONS (5)
  - COUGH [None]
  - ERYTHEMA [None]
  - LETHARGY [None]
  - MEDICAL DEVICE SITE REACTION [None]
  - PYREXIA [None]
